FAERS Safety Report 11098896 (Version 2)
Quarter: 2016Q1

REPORT INFORMATION
  Report Type: Spontaneous
  Country: SE (occurrence: SE)
  Receive Date: 20150508
  Receipt Date: 20160304
  Transmission Date: 20160525
  Serious: No
  Sender: FDA-Public Use
  Company Number: SE-PFIZER INC-2015150350

PATIENT
  Age: 74 Year
  Sex: Male

DRUGS (6)
  1. PLENDIL [Concomitant]
     Active Substance: FELODIPINE
     Dosage: 5 MG, UNK
  2. KALCIPOS [Concomitant]
     Active Substance: CALCIUM CARBONATE
     Dosage: 500 MG, UNK
  3. SELOKEEN [Concomitant]
     Active Substance: METOPROLOL
     Dosage: 100 MG, UNK
  4. DALACIN [Suspect]
     Active Substance: CLINDAMYCIN\CLINDAMYCIN PHOSPHATE
     Indication: PNEUMONIA
     Dosage: 1 DF, 3X/DAY
     Dates: start: 20120527, end: 20120601
  5. AVELOX [Suspect]
     Active Substance: MOXIFLOXACIN HYDROCHLORIDE
     Indication: PNEUMONIA
     Dosage: UNK
     Route: 048
     Dates: start: 20120527, end: 20120601
  6. ALENDRONIC ACID [Concomitant]
     Active Substance: ALENDRONIC ACID

REACTIONS (1)
  - Skin reaction [Recovered/Resolved]

NARRATIVE: CASE EVENT DATE: 20120527
